FAERS Safety Report 8066295-0 (Version None)
Quarter: 2012Q1

REPORT INFORMATION
  Report Type: 
  Country: None (occurrence: None)
  Receive Date: 20120124
  Receipt Date: 20120116
  Transmission Date: 20120608
  Serious: Yes (Other)
  Sender: FDA-Public Use
  Company Number: FR-ROCHE-1031603

PATIENT
  Age: 46 Year
  Sex: Female

DRUGS (2)
  1. PACLITAXEL [Concomitant]
     Indication: LUNG ADENOCARCINOMA
     Route: 065
  2. BEVACIZUMAB [Suspect]
     Indication: LUNG ADENOCARCINOMA
     Route: 065

REACTIONS (1)
  - LARYNGEAL NECROSIS [None]
